FAERS Safety Report 5803160-0 (Version None)
Quarter: 2008Q3

REPORT INFORMATION
  Report Type: 
  Country: None (occurrence: None)
  Receive Date: 20080708
  Receipt Date: 20080624
  Transmission Date: 20090109
  Serious: Yes (Hospitalization, Other)
  Sender: FDA-Public Use
  Company Number: US-ELI_LILLY_AND_COMPANY-US200806005281

PATIENT
  Sex: Female

DRUGS (2)
  1. CYMBALTA [Suspect]
     Indication: ANXIETY
     Dosage: 60 MG, DAILY (1/D)
     Dates: start: 20070601
  2. REMERON [Concomitant]

REACTIONS (4)
  - ANXIETY [None]
  - AORTIC STENOSIS [None]
  - GASTROINTESTINAL TUBE INSERTION [None]
  - LUNG DISORDER [None]
